FAERS Safety Report 9509301 (Version 1)
Quarter: 2013Q3

REPORT INFORMATION
  Report Type: Spontaneous
  Country: US (occurrence: US)
  Receive Date: 20130909
  Receipt Date: 20130909
  Transmission Date: 20140515
  Serious: No
  Sender: FDA-Public Use
  Company Number: US-BRISTOL-MYERS SQUIBB COMPANY-17319245

PATIENT
  Age: 59 Year
  Sex: Female
  Weight: 90.7 kg

DRUGS (4)
  1. ABILIFY TABS 5 MG [Suspect]
     Indication: BIPOLAR I DISORDER
     Dates: start: 201211
  2. VALIUM [Concomitant]
  3. HYDROCODONE [Concomitant]
  4. NEXIUM [Concomitant]

REACTIONS (3)
  - Gait disturbance [Unknown]
  - Feeling drunk [Unknown]
  - Feeling abnormal [Unknown]
